FAERS Safety Report 5497011-4 (Version None)
Quarter: 2007Q4

REPORT INFORMATION
  Report Type: 
  Country: None (occurrence: None)
  Receive Date: 20071018
  Receipt Date: 20070523
  Transmission Date: 20080405
  Serious: Yes (Other)
  Sender: FDA-Public Use
  Company Number: 2007042078

PATIENT
  Age: 65 Year
  Sex: Male
  Weight: 86.35 kg

DRUGS (15)
  1. NEURONTIN [Suspect]
     Indication: FIBROMYALGIA
     Dosage: 300 MG (100 MG, 3 IN 1 D)
  2. NEURONTIN [Suspect]
     Indication: NEUROPATHY
     Dosage: 300 MG (100 MG, 3 IN 1 D)
  3. ASPIRIN [Concomitant]
  4. ALPRAZOLAM [Concomitant]
  5. PAXIL [Concomitant]
  6. ZMAX [Concomitant]
  7. NEXIUM [Concomitant]
  8. CLONAZEPAM [Concomitant]
  9. HYDROCOROTISONE (HYDROCOROTISONE [Concomitant]
  10. AVANDIA [Concomitant]
  11. CALCIUM (CALCIUM0 [Concomitant]
  12. VITAMIN B12 [Concomitant]
  13. VITAMIN D [Concomitant]
  14. NORTRIPTYOLINE (NORTRIPTYOLINE) [Concomitant]
  15. ATENOLOL [Concomitant]

REACTIONS (4)
  - DRUG INEFFECTIVE [None]
  - GINGIVAL BLEEDING [None]
  - TOOTH DISORDER [None]
  - TOOTH FRACTURE [None]
